FAERS Safety Report 19371137 (Version 1)
Quarter: 2021Q2

REPORT INFORMATION
  Report Type: Report from Study
  Country: US (occurrence: US)
  Receive Date: 20210604
  Receipt Date: 20210604
  Transmission Date: 20210717
  Serious: No
  Sender: FDA-Public Use
  Company Number: US-ACADIA PHARMACEUTICALS INC.-ACA-2021-PIM-001768

PATIENT
  Sex: Female

DRUGS (11)
  1. MEMANTINE. [Concomitant]
     Active Substance: MEMANTINE
  2. CARBIDOPA/LEVODOPA [Concomitant]
     Active Substance: CARBIDOPA\LEVODOPA
  3. SPIRONOLACTONE. [Concomitant]
     Active Substance: SPIRONOLACTONE
  4. NUPLAZID [Suspect]
     Active Substance: PIMAVANSERIN TARTRATE
     Indication: PARKINSON^S DISEASE
     Dosage: UNK
     Route: 065
  5. MELOXICAM. [Concomitant]
     Active Substance: MELOXICAM
  6. MIRTAZAPINE. [Concomitant]
     Active Substance: MIRTAZAPINE
  7. SOLIFENACIN [Concomitant]
     Active Substance: SOLIFENACIN
  8. GABAPENTIN. [Concomitant]
     Active Substance: GABAPENTIN
  9. OMEPRAZOLE. [Concomitant]
     Active Substance: OMEPRAZOLE
  10. IBANDRONATE [Concomitant]
     Active Substance: IBANDRONATE SODIUM
  11. AMANTADINE. [Concomitant]
     Active Substance: AMANTADINE HYDROCHLORIDE

REACTIONS (2)
  - Condition aggravated [Not Recovered/Not Resolved]
  - Product dose omission issue [Not Recovered/Not Resolved]
